FAERS Safety Report 7782760-5 (Version None)
Quarter: 2011Q3

REPORT INFORMATION
  Report Type: 
  Country: None (occurrence: None)
  Receive Date: 20110928
  Receipt Date: 20110922
  Transmission Date: 20111222
  Serious: Yes (Other)
  Sender: FDA-Public Use
  Company Number: BE-PFIZER INC-2011226399

PATIENT
  Sex: Female

DRUGS (5)
  1. NEURONTIN [Suspect]
     Dosage: 100 MG, 1X/DAY
     Route: 048
  2. REDOMEX [Concomitant]
     Dosage: 25 MG
  3. ALPRAZOLAM [Concomitant]
     Dosage: 1 MG
  4. TRAMADOL HCL [Concomitant]
     Dosage: UNK
  5. DIAZEPAM [Concomitant]
     Dosage: 10 MG

REACTIONS (7)
  - EYELID OEDEMA [None]
  - NAUSEA [None]
  - SWELLING [None]
  - FLATULENCE [None]
  - HERPES ZOSTER [None]
  - CONSTIPATION [None]
  - VISUAL ACUITY REDUCED [None]
